FAERS Safety Report 5616710-4 (Version None)
Quarter: 2008Q1

REPORT INFORMATION
  Report Type: 
  Country: None (occurrence: None)
  Receive Date: 20080207
  Receipt Date: 20080130
  Transmission Date: 20080703
  Serious: Yes (Other)
  Sender: FDA-Public Use
  Company Number: PHBS2008BR01582

PATIENT
  Age: 71 Year
  Sex: Female

DRUGS (3)
  1. ZOMETA [Suspect]
     Indication: METASTASES TO BONE
     Dosage: 4 MG, QMO
     Dates: start: 20050101
  2. FEMARA [Suspect]
     Indication: BREAST CANCER
     Dosage: 2,5 MG UNK
     Dates: start: 20050101
  3. AROMASIN [Concomitant]
     Dosage: 1 DF, QD

REACTIONS (1)
  - OSTEONECROSIS [None]
